FAERS Safety Report 4993515-9 (Version None)
Quarter: 2006Q2

REPORT INFORMATION
  Report Type: 
  Country: None (occurrence: None)
  Receive Date: 20060503
  Receipt Date: 20060503
  Transmission Date: 20061013
  Serious: Yes (Hospitalization)
  Sender: FDA-Public Use
  Company Number: None

PATIENT
  Sex: Female
  Weight: 76.7033 kg

DRUGS (23)
  1. BEVACIZUMAB 5MG/KG GENETECH [Suspect]
     Indication: NEUROENDOCRINE TUMOUR
     Dosage: 375 MG QS Q 2 WEEKS IV
     Route: 042
     Dates: start: 20060102, end: 20060428
  2. BEVACIZUMAB 5MG/KG GENETECH [Suspect]
     Indication: PANCREATIC NEOPLASM
     Dosage: 375 MG QS Q 2 WEEKS IV
     Route: 042
     Dates: start: 20060102, end: 20060428
  3. DEXAMETHASONE [Suspect]
     Indication: NEUROENDOCRINE TUMOUR
     Dosage: 10 MG Q 2 WEEKS IV
     Route: 042
     Dates: start: 20060102, end: 20060428
  4. DEXAMETHASONE [Suspect]
     Indication: PANCREATIC NEOPLASM
     Dosage: 10 MG Q 2 WEEKS IV
     Route: 042
     Dates: start: 20060102, end: 20060428
  5. ALOXI [Suspect]
     Indication: NEUROENDOCRINE TUMOUR
     Dosage: 0.25 MG Q 2 WKS IV
     Route: 042
     Dates: start: 20060102, end: 20060428
  6. ALOXI [Suspect]
     Indication: PANCREATIC NEOPLASM
     Dosage: 0.25 MG Q 2 WKS IV
     Route: 042
     Dates: start: 20060102, end: 20060428
  7. OXALIPLATIN 65MG/M2 , SANOFI SYNTHELABO [Suspect]
     Indication: NEUROENDOCRINE TUMOUR
     Dosage: 125 MG Q 2 WKS IV
     Route: 042
     Dates: start: 20060102, end: 20060428
  8. OXALIPLATIN 65MG/M2 , SANOFI SYNTHELABO [Suspect]
     Indication: PANCREATIC NEOPLASM
     Dosage: 125 MG Q 2 WKS IV
     Route: 042
     Dates: start: 20060102, end: 20060428
  9. LEUCOVORIN CALCIUM [Suspect]
     Indication: NEUROENDOCRINE TUMOUR
     Dosage: 390 MG Q 2 WKS IV
     Route: 042
     Dates: start: 20060102, end: 20060428
  10. LEUCOVORIN CALCIUM [Suspect]
     Indication: PANCREATIC NEOPLASM
     Dosage: 390 MG Q 2 WKS IV
     Route: 042
     Dates: start: 20060102, end: 20060428
  11. FLUOROURACIL [Suspect]
     Indication: NEUROENDOCRINE TUMOUR
     Dosage: 620 MG + 1870 MG Q 2 WKS IV
     Route: 042
     Dates: start: 20060102, end: 20060428
  12. FLUOROURACIL [Suspect]
     Indication: PANCREATIC NEOPLASM
     Dosage: 620 MG + 1870 MG Q 2 WKS IV
     Route: 042
     Dates: start: 20060102, end: 20060428
  13. VICODIN [Concomitant]
  14. PANCREASE [Concomitant]
  15. CELEXA [Concomitant]
  16. COMPAZINE [Concomitant]
  17. ATIVAN [Concomitant]
  18. KYTRIL [Concomitant]
  19. HYDROCHLOROTHIAZIDE [Concomitant]
  20. COLACE [Concomitant]
  21. OXYCONTIN [Concomitant]
  22. PROTONIX [Concomitant]
  23. CARAFATE [Concomitant]

REACTIONS (7)
  - ABDOMINAL PAIN [None]
  - AORTIC THROMBOSIS [None]
  - BACK PAIN [None]
  - BLOOD PRESSURE INCREASED [None]
  - CHEST PAIN [None]
  - DYSPNOEA [None]
  - VOMITING [None]
